FAERS Safety Report 25019803 (Version 1)
Quarter: 2025Q1

REPORT INFORMATION
  Report Type: Spontaneous
  Country: US (occurrence: US)
  Receive Date: 20250227
  Receipt Date: 20250227
  Transmission Date: 20250409
  Serious: Yes (Hospitalization)
  Sender: PFIZER
  Company Number: US-PFIZER INC-202500044791

PATIENT
  Age: 70 Year
  Sex: Female

DRUGS (2)
  1. BRAFTOVI [Suspect]
     Active Substance: ENCORAFENIB
     Dosage: 450 MG (6 CAPSULES OF 75 MG), DAILY FOR 30 DAYS
  2. MEKTOVI [Suspect]
     Active Substance: BINIMETINIB
     Dosage: 30 MG (2 TABLETS OF 15 MG), 2X/DAY (TAKE APPROXIMATELY 12 HOURS APART)
     Route: 048

REACTIONS (1)
  - Seizure [Unknown]
